FAERS Safety Report 24233637 (Version 1)
Quarter: 2024Q3

REPORT INFORMATION
  Report Type: Spontaneous
  Country: US (occurrence: US)
  Receive Date: 20240821
  Receipt Date: 20240821
  Transmission Date: 20241016
  Serious: Yes (Other)
  Sender: SANOFI AVENTIS
  Company Number: US-SA-2024SA245040

PATIENT
  Age: 95 Year
  Sex: Female

DRUGS (3)
  1. LEFLUNOMIDE [Suspect]
     Active Substance: LEFLUNOMIDE
     Indication: Ocular pemphigoid
     Dosage: UNK
  2. PREDNISONE [Suspect]
     Active Substance: PREDNISONE
     Indication: Ocular pemphigoid
     Dosage: HIGH DOSE
  3. PREDNISONE [Suspect]
     Active Substance: PREDNISONE
     Dosage: TAPER

REACTIONS (3)
  - Sebaceous carcinoma [Unknown]
  - Eyelid ptosis [Unknown]
  - Mass [Unknown]
